FAERS Safety Report 5895319-1 (Version None)
Quarter: 2008Q3

REPORT INFORMATION
  Report Type: 
  Country: None (occurrence: None)
  Receive Date: 20080717
  Receipt Date: 20080717
  Transmission Date: 20090109
  Serious: No
  Sender: FDA-Public Use
  Company Number: None

PATIENT
  Age: 11 Year
  Sex: Female
  Weight: 37.195 kg

DRUGS (1)
  1. CANKER COVER QUANTUMHEALTH [Suspect]
     Indication: APHTHOUS STOMATITIS
     Dosage: 1 TABLET 8-12 HOURS DENTAL
     Route: 004
     Dates: start: 20080715, end: 20080716

REACTIONS (6)
  - CRYING [None]
  - DISCOMFORT [None]
  - GINGIVAL DISORDER [None]
  - GINGIVAL PAIN [None]
  - LIP SWELLING [None]
  - WRONG TECHNIQUE IN DRUG USAGE PROCESS [None]
